FAERS Safety Report 7726485-0 (Version None)
Quarter: 2011Q3

REPORT INFORMATION
  Report Type: 
  Country: None (occurrence: None)
  Receive Date: 20110902
  Receipt Date: 20110822
  Transmission Date: 20111222
  Serious: Yes (Hospitalization)
  Sender: FDA-Public Use
  Company Number: PHHY2011CO76092

PATIENT
  Sex: Female

DRUGS (8)
  1. LEVOTHYROXINE SODIUM [Concomitant]
     Dosage: UNK UKN, UNK
     Route: 042
  2. SUDOCETINA [Concomitant]
     Dosage: UNK UKN, UNK
  3. OMEPRAZOLE [Concomitant]
     Dosage: UNK UKN, UNK
  4. ACETYLSALICYLIC ACID SRT [Concomitant]
     Dosage: UNK UKN, UNK
  5. ZOLEDRONOC ACID [Suspect]
     Indication: OSTEOPOROSIS
     Dosage: 5 MG, UNK (PER YEAR)
     Route: 042
     Dates: start: 20110419
  6. HYDROCHLOROTHIAZIDE [Concomitant]
     Dosage: UNK UKN, UNK
  7. TRAZODONE HCL [Concomitant]
     Dosage: UNK UKN, UNK
  8. ENALAPRIL MALEATE [Concomitant]
     Dosage: UNK UKN, UNK

REACTIONS (5)
  - CHILLS [None]
  - ASTHENIA [None]
  - BACK PAIN [None]
  - LUNG INFECTION [None]
  - DECREASED APPETITE [None]
